FAERS Safety Report 5436002-6 (Version None)
Quarter: 2007Q3

REPORT INFORMATION
  Report Type: 
  Country: None (occurrence: None)
  Receive Date: 20070831
  Receipt Date: 20070827
  Transmission Date: 20080115
  Serious: Yes (Other)
  Sender: FDA-Public Use
  Company Number: A0677436A

PATIENT
  Sex: Male

DRUGS (1)
  1. STELAZINE [Suspect]
     Indication: DRUG USE FOR UNKNOWN INDICATION
     Dosage: 20TAB SINGLE DOSE
     Route: 048

REACTIONS (2)
  - INTENTIONAL OVERDOSE [None]
  - NO ADVERSE REACTION [None]
